FAERS Safety Report 10026942 (Version 1)
Quarter: 2014Q1

REPORT INFORMATION
  Report Type: Spontaneous
  Country: GB (occurrence: None)
  Receive Date: 20140318
  Receipt Date: 20140318
  Transmission Date: 20141002
  Serious: Yes (Life-Threatening)
  Sender: FDA-Public Use
  Company Number: GB-20140011

PATIENT
  Age: 43 Year
  Sex: Female

DRUGS (4)
  1. DOTAREM [Suspect]
     Indication: NUCLEAR MAGNETIC RESONANCE IMAGING
     Dosage: 10 ML, 1 IN 1 D (NOT OTHERWISE SPECIFIED)
     Route: 042
     Dates: start: 20140214, end: 20140214
  2. KLEAN PREP (MACROGOL 3350, POTASSIUM CHLORIDE, SODIUM BICARBONATE, SODIUM CHLORIDE3, SODIUM SULFATE ANHYDROUS) [Concomitant]
  3. HUSCOPAN (HYOSCINE BUDYLBROMIDE) [Concomitant]
  4. SALINE (SODIUM CHLORIDE) [Concomitant]

REACTIONS (6)
  - Dyspnoea [None]
  - Erythema [None]
  - Chest discomfort [None]
  - Sneezing [None]
  - Loss of consciousness [None]
  - Blood pressure decreased [None]
